FAERS Safety Report 6136196-3 (Version None)
Quarter: 2009Q1

REPORT INFORMATION
  Report Type: 
  Country: None (occurrence: None)
  Receive Date: 20090330
  Receipt Date: 20090226
  Transmission Date: 20090719
  Serious: No
  Sender: FDA-Public Use
  Company Number: US-BAYER-200914520NA

PATIENT
  Age: 24 Year
  Sex: Female
  Weight: 89 kg

DRUGS (1)
  1. YASMIN [Suspect]
     Indication: CONTRACEPTION
     Route: 048
     Dates: start: 20090201, end: 20090226

REACTIONS (5)
  - ABNORMAL WITHDRAWAL BLEEDING [None]
  - LETHARGY [None]
  - NAUSEA [None]
  - NO ADVERSE EVENT [None]
  - VOMITING [None]
